FAERS Safety Report 7094302-0 (Version None)
Quarter: 2010Q4

REPORT INFORMATION
  Report Type: 
  Country: None (occurrence: None)
  Receive Date: 20101110
  Receipt Date: 20101103
  Transmission Date: 20110411
  Serious: Yes (Hospitalization)
  Sender: FDA-Public Use
  Company Number: US-ELI_LILLY_AND_COMPANY-US201011000984

PATIENT
  Sex: Male

DRUGS (3)
  1. GEMCITABINE HCL [Suspect]
     Indication: TRANSITIONAL CELL CARCINOMA
     Dosage: 800 MG/M2, OTHER
     Route: 042
     Dates: start: 20101012, end: 20101012
  2. SUNITINIB MALATE [Suspect]
     Indication: TRANSITIONAL CELL CARCINOMA
     Dosage: 37.5 MG, DAILY (1/D)
     Route: 048
  3. CISPLATIN [Suspect]
     Indication: TRANSITIONAL CELL CARCINOMA
     Dosage: 60 MG/M2, OTHER
     Route: 042
     Dates: start: 20101012, end: 20101012

REACTIONS (1)
  - GASTROINTESTINAL HAEMORRHAGE [None]
